FAERS Safety Report 7987627-5 (Version None)
Quarter: 2011Q4

REPORT INFORMATION
  Report Type: 
  Country: None (occurrence: None)
  Receive Date: 20111216
  Receipt Date: 20101109
  Transmission Date: 20120403
  Serious: No
  Sender: FDA-Public Use
  Company Number: US-BRISTOL-MYERS SQUIBB COMPANY-15282064

PATIENT
  Age: 58 Year
  Sex: Female
  Weight: 113 kg

DRUGS (6)
  1. AMITRIPTYLINE HCL [Concomitant]
  2. ABILIFY [Suspect]
     Indication: DEPRESSION
     Dates: start: 20100101
  3. THYROID TAB [Concomitant]
  4. TAMOXIFEN [Concomitant]
     Indication: BREAST CANCER
     Dates: end: 20100601
  5. SEROQUEL [Concomitant]
  6. CYMBALTA [Concomitant]

REACTIONS (2)
  - FEELING ABNORMAL [None]
  - PRURITUS [None]
